FAERS Safety Report 10056534 (Version 1)
Quarter: 2014Q2

REPORT INFORMATION
  Report Type: Spontaneous
  Country: US (occurrence: US)
  Receive Date: 20140403
  Receipt Date: 20140403
  Transmission Date: 20141212
  Serious: No
  Sender: FDA-Public Use
  Company Number: US-PFIZER INC-2014093181

PATIENT
  Age: 84 Year
  Sex: Male

DRUGS (2)
  1. CELEBREX [Suspect]
     Indication: ARTHRALGIA
     Dosage: 200 MG, DAILY
  2. CELEBREX [Suspect]
     Indication: GROIN PAIN

REACTIONS (2)
  - Expired product administered [Unknown]
  - Drug effect incomplete [Unknown]
